FAERS Safety Report 21921211 (Version 1)
Quarter: 2023Q1

REPORT INFORMATION
  Report Type: Spontaneous
  Country: CZ (occurrence: CZ)
  Receive Date: 20230127
  Receipt Date: 20230127
  Transmission Date: 20230417
  Serious: Yes (Other)
  Sender: FDA-Public Use
  Company Number: CZ-FreseniusKabi-FK202301071

PATIENT
  Age: 65 Year
  Sex: Female

DRUGS (15)
  1. ROCURONIUM BROMIDE [Suspect]
     Active Substance: ROCURONIUM BROMIDE
     Indication: Anaesthesia
     Dosage: 40 MG FOR ANAESTHESIA
     Route: 042
  2. ROCURONIUM BROMIDE [Suspect]
     Active Substance: ROCURONIUM BROMIDE
     Dosage: THE LAST DOSE OF 10MG ADMINISTERED 35 MIN BEFORE END OF SURGERY
     Route: 042
  3. PROPOFOL [Suspect]
     Active Substance: PROPOFOL
     Indication: Anaesthesia
     Route: 042
  4. ATROPINE [Suspect]
     Active Substance: ATROPINE
     Indication: Anaesthetic premedication
     Route: 030
  5. MIDAZOLAM [Suspect]
     Active Substance: MIDAZOLAM
     Indication: Anaesthetic premedication
     Route: 042
  6. SUFENTANIL [Suspect]
     Active Substance: SUFENTANIL
     Indication: Anaesthesia
     Dosage: 20 ?G/H, DISCONTINUED 30 MINUTE BEFORE END OF SURGERY
     Route: 042
  7. SUFENTANIL [Suspect]
     Active Substance: SUFENTANIL
     Route: 042
  8. ISOFLURANE [Suspect]
     Active Substance: ISOFLURANE
     Indication: Anaesthesia
     Dosage: 0.8?1.2 VOL. %
     Route: 055
  9. ALPRAZOLAM [Suspect]
     Active Substance: ALPRAZOLAM
     Indication: Sleep disorder
     Route: 065
  10. SUGAMMADEX [Concomitant]
     Active Substance: SUGAMMADEX
     Indication: Neuromuscular blockade reversal
  11. MESALAMINE [Concomitant]
     Active Substance: MESALAMINE
     Indication: Crohn^s disease
  12. ESCITALOPRAM [Concomitant]
     Active Substance: ESCITALOPRAM OXALATE
     Indication: Depression
  13. OMEPRAZOLE [Concomitant]
     Active Substance: OMEPRAZOLE
     Indication: Dyspepsia
  14. METAMIZOLE [Concomitant]
     Active Substance: METAMIZOLE
     Indication: Pain
  15. NEBIVOLOL [Concomitant]
     Active Substance: NEBIVOLOL
     Indication: Hypertension

REACTIONS (1)
  - Anticholinergic syndrome [Recovered/Resolved]
